FAERS Safety Report 9184731 (Version 3)
Quarter: 2013Q3

REPORT INFORMATION
  Report Type: Spontaneous
  Country: JP (occurrence: JP)
  Receive Date: 20130324
  Receipt Date: 20130718
  Transmission Date: 20140515
  Serious: Yes (Hospitalization)
  Sender: FDA-Public Use
  Company Number: PHHY2013JP026678

PATIENT
  Age: 83 Year
  Sex: Male

DRUGS (2)
  1. GLIVEC [Suspect]
     Indication: GASTROINTESTINAL STROMAL TUMOUR
     Dosage: UNK
     Route: 048
     Dates: start: 2008, end: 201212
  2. HARNAL [Concomitant]
     Dosage: UNK
     Route: 048

REACTIONS (8)
  - Malignant neoplasm of spinal cord [Unknown]
  - Syringomyelia [Unknown]
  - Lumbar spinal stenosis [Unknown]
  - Second primary malignancy [Unknown]
  - Monoplegia [Not Recovered/Not Resolved]
  - Gait disturbance [Not Recovered/Not Resolved]
  - Arthralgia [Unknown]
  - No therapeutic response [Unknown]
